FAERS Safety Report 8880449 (Version 2)
Quarter: 2014Q1

REPORT INFORMATION
  Report Type: Report from Study
  Country: CA (occurrence: CA)
  Receive Date: 20121101
  Receipt Date: 20140312
  Transmission Date: 20141002
  Serious: Yes (Hospitalization)
  Sender: FDA-Public Use
  Company Number: CA-JNJFOC-20121012039

PATIENT
  Age: 48 Year
  Sex: Male
  Weight: 52.5 kg

DRUGS (9)
  1. REMICADE [Suspect]
     Indication: CROHN^S DISEASE
     Route: 042
     Dates: start: 20111115, end: 201304
  2. METHOTREXATE [Concomitant]
     Dosage: 25 (UNITS UNSPECIFIED)
     Route: 030
  3. PREDNISONE [Concomitant]
     Dosage: 50 (UNITS UNSPECIFIED) ONCE DAILY
     Route: 048
  4. COUMADIN [Concomitant]
     Dosage: 6 (UNITS UNSPECIFIED) ONCE DAILY
     Route: 065
  5. FRAGMINE [Concomitant]
     Dosage: 10000 (UNITS UNSPECIFIED) TWICE DAILY
     Route: 058
  6. VITAMIN B12 [Concomitant]
     Route: 065
  7. DILAUDID [Concomitant]
     Dosage: 1.5 (UNITS UNSPECIFIED) AS NECESSARY
     Route: 065
  8. VITAMIN D [Concomitant]
     Route: 065
  9. ATOVAQUONE [Concomitant]
     Route: 065

REACTIONS (3)
  - Sepsis [Unknown]
  - Device related infection [Unknown]
  - Thrombosis in device [Unknown]
